FAERS Safety Report 16784757 (Version 2)
Quarter: 2019Q3

REPORT INFORMATION
  Report Type: Spontaneous
  Country: FR (occurrence: FR)
  Receive Date: 20190909
  Receipt Date: 20190916
  Transmission Date: 20191005
  Serious: Yes (Hospitalization, Other)
  Sender: FDA-Public Use
  Company Number: FR-AMGEN-FRASP2019136043

PATIENT
  Age: 70 Year
  Sex: Female
  Weight: 55 kg

DRUGS (2)
  1. NEULASTA [Suspect]
     Active Substance: PEGFILGRASTIM
     Indication: PRODUCT USED FOR UNKNOWN INDICATION
     Dosage: 6 MILLIGRAM, AFTER CHEMO/ 3 WEEKS
     Route: 058
     Dates: start: 20190821
  2. C 1000 (ASCORBIC ACID) [Suspect]
     Active Substance: ASCORBIC ACID
     Indication: BREAST CANCER
     Dosage: UNK
     Route: 065
     Dates: start: 20190820

REACTIONS (3)
  - Inappropriate schedule of product administration [Unknown]
  - Febrile neutropenia [Recovered/Resolved]
  - Wrong technique in product usage process [Unknown]

NARRATIVE: CASE EVENT DATE: 20190821
